FAERS Safety Report 15333197 (Version 1)
Quarter: 2018Q3

REPORT INFORMATION
  Report Type: Spontaneous
  Country: US (occurrence: US)
  Receive Date: 20180830
  Receipt Date: 20180830
  Transmission Date: 20181010
  Serious: No
  Sender: FDA-Public Use
  Company Number: US-ELI_LILLY_AND_COMPANY-US201808014314

PATIENT

DRUGS (1)
  1. HUMALOG [Suspect]
     Active Substance: INSULIN LISPRO
     Indication: PRODUCT USED FOR UNKNOWN INDICATION
     Dosage: UNK UNK, DAILY IN 1 HR OF FIRST MEAL OF DAY
     Route: 065

REACTIONS (4)
  - Blood glucose decreased [Unknown]
  - Poor quality sleep [Unknown]
  - Blood glucose increased [Unknown]
  - Weight increased [Unknown]
